FAERS Safety Report 8592812-8 (Version None)
Quarter: 2012Q3

REPORT INFORMATION
  Report Type: 
  Country: None (occurrence: None)
  Receive Date: 20120814
  Receipt Date: 20120810
  Transmission Date: 20120928
  Serious: Yes (Hospitalization)
  Sender: FDA-Public Use
  Company Number: US-PFIZER INC-2012125310

PATIENT
  Age: 88 Year
  Sex: Female
  Weight: 68.027 kg

DRUGS (6)
  1. VOLTAREN [Suspect]
     Dosage: 1 DF, 2X/DAY
  2. NORCO [Concomitant]
     Dosage: UNK
  3. LIDODERM [Concomitant]
     Dosage: UNK
  4. ARTHROTEC [Suspect]
     Indication: ARTHRITIS
     Dosage: 200 MCG+75MG  2XDAY 5DAYS IN A WEEK
     Route: 048
     Dates: start: 20110801, end: 20120406
  5. MICROZIDE [Concomitant]
     Dosage: 25 MG, UNK
  6. CO-Q-10 [Concomitant]
     Dosage: UNK,

REACTIONS (7)
  - GASTROINTESTINAL ULCER HAEMORRHAGE [None]
  - DECREASED APPETITE [None]
  - NAUSEA [None]
  - MALAISE [None]
  - VOMITING [None]
  - ABDOMINAL PAIN UPPER [None]
  - WEIGHT DECREASED [None]
